FAERS Safety Report 20814618 (Version 1)
Quarter: 2022Q2

REPORT INFORMATION
  Report Type: Spontaneous
  Country: US (occurrence: US)
  Receive Date: 20220511
  Receipt Date: 20220511
  Transmission Date: 20220720
  Serious: Yes (Other)
  Sender: FDA-Public Use
  Company Number: US-JNJFOC-20220506266

PATIENT
  Sex: Male

DRUGS (2)
  1. XARELTO [Suspect]
     Active Substance: RIVAROXABAN
     Indication: Thrombosis
     Dosage: PRESCRIPTION NUMBER 308658R
     Route: 048
  2. ASPIRIN [Suspect]
     Active Substance: ASPIRIN
     Indication: Product used for unknown indication
     Route: 065

REACTIONS (9)
  - Poisoning [Unknown]
  - Thrombosis [Unknown]
  - Pulmonary embolism [Unknown]
  - Facial bones fracture [Unknown]
  - Intra-abdominal haematoma [Unknown]
  - Epistaxis [Unknown]
  - Chest discomfort [Unknown]
  - Hypoaesthesia [Unknown]
  - Treatment noncompliance [Unknown]
